FAERS Safety Report 13698173 (Version 2)
Quarter: 2017Q3

REPORT INFORMATION
  Report Type: Spontaneous
  Country: IT (occurrence: IT)
  Receive Date: 20170628
  Receipt Date: 20170711
  Transmission Date: 20171127
  Serious: Yes (Other)
  Sender: FDA-Public Use
  Company Number: IT-PFIZER INC-2017278546

PATIENT
  Age: 85 Year
  Sex: Female

DRUGS (8)
  1. TOLEP [Concomitant]
     Active Substance: OXCARBAZEPINE
     Dosage: 300 MG, 2X/DAY
  2. TENORMIN [Concomitant]
     Active Substance: ATENOLOL
     Dosage: 0.25 DF, 1X/DAY
  3. NORVASC [Concomitant]
     Active Substance: AMLODIPINE BESYLATE
     Dosage: 5 MG, 1X/DAY
  4. LYRICA [Suspect]
     Active Substance: PREGABALIN
     Dosage: 25 MG, SINGLE
     Route: 048
     Dates: start: 20170627, end: 20170627
  5. XANAX [Suspect]
     Active Substance: ALPRAZOLAM
     Indication: ANXIETY DISORDER
     Dosage: 1 MG, DAILY
     Route: 048
     Dates: start: 2015, end: 20170627
  6. KARVEZIDE [Concomitant]
     Active Substance: HYDROCHLOROTHIAZIDE\IRBESARTAN
     Dosage: 300 MG, 1X/DAY
  7. CARDURA [Concomitant]
     Active Substance: DOXAZOSIN MESYLATE
     Dosage: 2 MG, 1X/DAY
  8. KEPPRA [Concomitant]
     Active Substance: LEVETIRACETAM
     Dosage: 1500 MG, 2X/DAY

REACTIONS (4)
  - Generalised tonic-clonic seizure [Recovered/Resolved]
  - Tremor [Recovered/Resolved]
  - Hemiparesis [Recovered/Resolved]
  - Muscle spasms [Recovered/Resolved]
